FAERS Safety Report 22033881 (Version 1)
Quarter: 2023Q1

REPORT INFORMATION
  Report Type: Spontaneous
  Country: US (occurrence: None)
  Receive Date: 20230222
  Receipt Date: 20230222
  Transmission Date: 20230418
  Serious: Yes (Disabling)
  Sender: FDA-Public Use
  Company Number: None

PATIENT
  Age: 27 Year
  Sex: Female
  Weight: 85.5 kg

DRUGS (5)
  1. HYDROXYZINE DIHYDROCHLORIDE [Suspect]
     Active Substance: HYDROXYZINE DIHYDROCHLORIDE
     Indication: Anxiety
     Dosage: OTHER QUANTITY : 2 TABLET(S);?FREQUENCY : 3 TIMES A DAY;?
     Route: 048
     Dates: start: 20230216, end: 20230217
  2. IBUPROFEN [Concomitant]
     Active Substance: IBUPROFEN
  3. GABAPENTIN [Concomitant]
     Active Substance: GABAPENTIN
  4. NAPROXEN [Concomitant]
     Active Substance: NAPROXEN
  5. TOPIRAMATE [Concomitant]
     Active Substance: TOPIRAMATE

REACTIONS (2)
  - Hallucination [None]
  - Restlessness [None]

NARRATIVE: CASE EVENT DATE: 20230217
